FAERS Safety Report 10203593 (Version 1)
Quarter: 2014Q2

REPORT INFORMATION
  Report Type: Spontaneous
  Country: GB (occurrence: None)
  Receive Date: 20140523
  Receipt Date: 20140523
  Transmission Date: 20141212
  Serious: Yes (Other)
  Sender: FDA-Public Use
  Company Number: FK201401891

PATIENT
  Age: 74 Year
  Sex: Female
  Weight: 60 kg

DRUGS (22)
  1. ANASTROZOLE (MANUFACTURER UNKNOWN) (ANASTROZOLE) (ANASTROZOLE) [Suspect]
     Indication: PRODUCT USED FOR UNKNOWN INDICATION
     Dates: start: 20140110
  2. OMEPRAZOLE [Concomitant]
  3. ALENDRONIC ACID [Concomitant]
  4. ASPIRIN [Concomitant]
  5. BIOTENE DRY MOUTH [Concomitant]
  6. CALCICHEW D3 [Concomitant]
  7. CARBOCISTEINE [Concomitant]
  8. CLARITHROMYCIN [Concomitant]
  9. DIORALYTE [Concomitant]
  10. DOXYCYCLINE [Concomitant]
  11. ETHAMBUTOL [Concomitant]
  12. FERROUS FUMARATE [Concomitant]
  13. FORTISIP [Concomitant]
  14. LOPERAMIDE [Concomitant]
  15. PARACETAMOL [Concomitant]
  16. PREDNISOLONE [Concomitant]
  17. RIFAMPICIN [Concomitant]
  18. SERETIDE [Concomitant]
  19. SULFASALAZINE [Concomitant]
  20. TIOTROPIUM [Concomitant]
  21. TRAMADOL [Concomitant]
  22. VENTOLIN [Concomitant]

REACTIONS (2)
  - Bradycardia [None]
  - Syncope [None]
